FAERS Safety Report 23962335 (Version 1)
Quarter: 2024Q2

REPORT INFORMATION
  Report Type: Spontaneous
  Country: US (occurrence: None)
  Receive Date: 20240611
  Receipt Date: 20240611
  Transmission Date: 20240716
  Serious: Yes (Hospitalization)
  Sender: FDA-Public Use
  Company Number: None

PATIENT
  Sex: Male

DRUGS (1)
  1. CAPECITABINE [Suspect]
     Active Substance: CAPECITABINE
     Indication: Colon cancer
     Dosage: 500 MG AM,  400 MG PM PO?? FREQUENCY: DAILY FOR 14 DAYS FOLLOWED BY A 7 DAY RES
     Route: 048
     Dates: start: 20240226

REACTIONS (1)
  - Dehydration [None]
